FAERS Safety Report 8358889 (Version 2)
Quarter: 2012Q4

REPORT INFORMATION
  Report Type: Spontaneous
  Country: US (occurrence: None)
  Receive Date: 20120117
  Receipt Date: 20120823
  Transmission Date: 20130627
  Serious: Yes (Other)
  Sender: FDA-Public Use
  Company Number: 2012MA000395

PATIENT
  Sex: Female
  Weight: 68.04 kg

DRUGS (17)
  1. METOCLOPRAMIDE [Suspect]
     Indication: ACID REFLUX (ESOPHAGEAL)
     Dosage: ;UNK;UNK
     Dates: start: 20090321, end: 20090616
  2. ALPRAZOLAM [Concomitant]
  3. ATENOLOL [Concomitant]
  4. BACLOFEN [Concomitant]
  5. CEPHALEXIN [Concomitant]
  6. CHLORHEXADINE SOLUTION [Concomitant]
  7. DICYCLOMINE [Concomitant]
  8. ENALAPRIL [Concomitant]
  9. ENULOSE [Concomitant]
  10. FLUCONAZOLE [Concomitant]
  11. FLUNISOLIDE [Concomitant]
  12. HYDROCODONE/APAP [Concomitant]
  13. LORATADINE [Concomitant]
  14. PROPRANOLOL [Concomitant]
  15. TRANSDERM-SCOP [Concomitant]
  16. TRIHEXYPHENIDYL [Concomitant]
  17. WARFARIN [Concomitant]

REACTIONS (5)
  - Tardive dyskinesia [None]
  - Emotional disorder [None]
  - Economic problem [None]
  - Family stress [None]
  - Amnesia [None]
